FAERS Safety Report 5456906-8 (Version None)
Quarter: 2007Q3

REPORT INFORMATION
  Report Type: 
  Country: None (occurrence: None)
  Receive Date: 20070917
  Receipt Date: 20070917
  Transmission Date: 20080115
  Serious: Yes (Other)
  Sender: FDA-Public Use
  Company Number: None

PATIENT
  Age: 26 Year
  Sex: Male
  Weight: 90.7194 kg

DRUGS (2)
  1. ZOLPIDEM TARTRATE [Suspect]
     Indication: ANXIETY
     Dosage: 10 MG 1 AT BEDTIME PO
     Route: 048
     Dates: start: 20070910, end: 20070914
  2. ZOLPIDEM TARTRATE [Suspect]
     Indication: INSOMNIA
     Dosage: 10 MG 1 AT BEDTIME PO
     Route: 048
     Dates: start: 20070910, end: 20070914

REACTIONS (4)
  - DRUG EFFECT DECREASED [None]
  - FATIGUE [None]
  - FEELING ABNORMAL [None]
  - THERAPEUTIC RESPONSE UNEXPECTED WITH DRUG SUBSTITUTION [None]
